FAERS Safety Report 9624704 (Version 3)
Quarter: 2013Q4

REPORT INFORMATION
  Report Type: Spontaneous
  Country: US (occurrence: US)
  Receive Date: 20131015
  Receipt Date: 20131030
  Transmission Date: 20140711
  Serious: Yes (Other)
  Sender: FDA-Public Use
  Company Number: US-OPTIMER-20130405

PATIENT
  Age: 51 Year
  Sex: Female

DRUGS (1)
  1. FIDAXOMICIN [Suspect]
     Indication: CLOSTRIDIUM DIFFICILE COLITIS
     Dosage: UNK
     Dates: start: 20121218, end: 20121228

REACTIONS (1)
  - Treatment failure [Unknown]
